FAERS Safety Report 11393622 (Version 1)
Quarter: 2015Q3

REPORT INFORMATION
  Report Type: Spontaneous
  Country: FR (occurrence: FR)
  Receive Date: 20150819
  Receipt Date: 20150819
  Transmission Date: 20151125
  Serious: Yes (Hospitalization, Other)
  Sender: FDA-Public Use
  Company Number: FR-PFIZER INC-2015274423

PATIENT
  Age: 79 Year
  Sex: Male

DRUGS (11)
  1. CARDENSIEL [Concomitant]
     Active Substance: BISOPROLOL FUMARATE
     Dosage: UNK
  2. LASILIX SPECIAL [Concomitant]
     Active Substance: FUROSEMIDE
     Dosage: UNK
  3. LYRICA [Concomitant]
     Active Substance: PREGABALIN
     Dosage: UNK
  4. STAGID [Concomitant]
     Active Substance: METFORMIN PAMOATE
     Dosage: UNK
     Dates: end: 20150517
  5. LEVOTHYROXINE. [Concomitant]
     Active Substance: LEVOTHYROXINE
     Dosage: 100 ?G, UNK
  6. CORDARONE [Suspect]
     Active Substance: AMIODARONE HYDROCHLORIDE
     Dosage: 200 MG, DAILY
     Route: 048
  7. ATORVASTATIN [Concomitant]
     Active Substance: ATORVASTATIN
     Dosage: UNK
  8. LEVOTHYROX [Concomitant]
     Active Substance: LEVOTHYROXINE
     Dosage: 25 ?G, UNK
  9. AUGMENTIN [Interacting]
     Active Substance: AMOXICILLIN\CLAVULANATE POTASSIUM
     Indication: BRONCHIAL DISORDER
     Dosage: UNK
     Route: 048
     Dates: start: 20150512, end: 20150520
  10. LAROXYL [Concomitant]
     Active Substance: AMITRIPTYLINE
     Dosage: UNK
  11. PREVISCAN [Interacting]
     Active Substance: FLUINDIONE
     Dosage: 0.75 DF, DAILY
     Route: 048
     Dates: end: 20150517

REACTIONS (5)
  - Abdominal wall haematoma [Recovering/Resolving]
  - International normalised ratio increased [Recovered/Resolved]
  - Anaemia [Recovering/Resolving]
  - Acute kidney injury [Recovered/Resolved]
  - Drug interaction [Recovering/Resolving]

NARRATIVE: CASE EVENT DATE: 20150517
